FAERS Safety Report 5016009-3 (Version None)
Quarter: 2006Q2

REPORT INFORMATION
  Report Type: 
  Country: None (occurrence: None)
  Receive Date: 20060531
  Receipt Date: 20060531
  Transmission Date: 20061013
  Serious: No
  Sender: FDA-Public Use
  Company Number: None

PATIENT
  Sex: Female
  Weight: 127.0072 kg

DRUGS (8)
  1. SEROQUEL [Suspect]
     Indication: ANXIETY
     Dosage: 1 TABLET ONCE PO
     Route: 048
     Dates: start: 20060516, end: 20060516
  2. SEROQUEL [Suspect]
     Indication: MAJOR DEPRESSION
     Dosage: 1 TABLET ONCE PO
     Route: 048
     Dates: start: 20060516, end: 20060516
  3. WELLBUTRIN XL [Concomitant]
  4. LAMICTAL [Concomitant]
  5. CYMBALTA [Concomitant]
  6. ADDERALL 10 [Concomitant]
  7. CYTOMEL [Concomitant]
  8. LEVOXYL [Concomitant]

REACTIONS (4)
  - ABNORMAL DREAMS [None]
  - ABNORMAL SLEEP-RELATED EVENT [None]
  - AGGRESSION [None]
  - DISINHIBITION [None]
